FAERS Safety Report 13068694 (Version 2)
Quarter: 2017Q1

REPORT INFORMATION
  Report Type: Spontaneous
  Country: US (occurrence: US)
  Receive Date: 20161228
  Receipt Date: 20170111
  Transmission Date: 20170428
  Serious: No
  Sender: FDA-Public Use
  Company Number: US-SHIRE-US201620213

PATIENT
  Age: 62 Year
  Sex: Female
  Weight: 63.49 kg

DRUGS (5)
  1. METHOTREXATE. [Suspect]
     Active Substance: METHOTREXATE
     Indication: SARCOIDOSIS
     Dosage: 30 MG, 1X/WEEK(EVERY SUNDAY)
     Route: 048
     Dates: start: 201610
  2. VERAPAMIL [Concomitant]
     Active Substance: VERAPAMIL HYDROCHLORIDE
     Indication: SARCOIDOSIS
     Dosage: 360 MG, 1X/DAY:QD
     Route: 048
  3. ALBUTEROL                          /00139501/ [Suspect]
     Active Substance: ALBUTEROL
     Indication: CHRONIC OBSTRUCTIVE PULMONARY DISEASE
     Dosage: UNK, AS REQ^D (PRN PUFFS)
     Route: 048
     Dates: start: 201610
  4. ADVAIR HFA [Suspect]
     Active Substance: FLUTICASONE PROPIONATE\SALMETEROL XINAFOATE
     Indication: CHRONIC OBSTRUCTIVE PULMONARY DISEASE
     Dosage: UNK, AS REQ^D(PRN PUFFS)
     Route: 048
     Dates: start: 201610
  5. XIIDRA [Suspect]
     Active Substance: LIFITEGRAST
     Indication: DRY EYE
     Dosage: 1 GTT, 2X/DAY:BID(OU)
     Route: 047
     Dates: start: 201610, end: 20170105

REACTIONS (2)
  - Muscle spasms [Unknown]
  - Instillation site pain [Unknown]

NARRATIVE: CASE EVENT DATE: 201610
